FAERS Safety Report 17693728 (Version 1)
Quarter: 2020Q2

REPORT INFORMATION
  Report Type: Spontaneous
  Country: US (occurrence: US)
  Receive Date: 20200422
  Receipt Date: 20200422
  Transmission Date: 20200714
  Serious: Yes (Hospitalization)
  Sender: FDA-Public Use
  Company Number: None

PATIENT
  Age: 59 Year
  Sex: Male
  Weight: 68.4 kg

DRUGS (2)
  1. LISINOPRIL/HCTZ [Suspect]
     Active Substance: HYDROCHLOROTHIAZIDE\LISINOPRIL
     Indication: HYPERTENSION
     Route: 048
     Dates: start: 20200418, end: 20200420
  2. OMEPRAZOLE 40 MG DAILY [Concomitant]
     Dates: start: 20200309

REACTIONS (2)
  - Haematuria [None]
  - Blood sodium decreased [None]

NARRATIVE: CASE EVENT DATE: 20200418
